FAERS Safety Report 12293635 (Version 1)
Quarter: 2016Q2

REPORT INFORMATION
  Report Type: Spontaneous
  Country: US (occurrence: US)
  Receive Date: 20160421
  Receipt Date: 20160421
  Transmission Date: 20160815
  Serious: No
  Sender: FDA-Public Use
  Company Number: US-B.I. PHARMACEUTICALS,INC./RIDGEFIELD-2016-BI-21405BP

PATIENT
  Age: 77 Year
  Sex: Female

DRUGS (1)
  1. SPIRIVA [Suspect]
     Active Substance: TIOTROPIUM BROMIDE MONOHYDRATE
     Indication: EMPHYSEMA
     Dosage: 1.25 MCG
     Route: 055
     Dates: start: 201602

REACTIONS (3)
  - Headache [Unknown]
  - Off label use [Unknown]
  - Paranasal sinus discomfort [Unknown]

NARRATIVE: CASE EVENT DATE: 201602
